FAERS Safety Report 14073506 (Version 1)
Quarter: 2017Q4

REPORT INFORMATION
  Report Type: Spontaneous
  Country: DE (occurrence: DE)
  Receive Date: 20171011
  Receipt Date: 20171011
  Transmission Date: 20180321
  Serious: Yes (Hospitalization)
  Sender: FDA-Public Use
  Company Number: DE-BAYER-2017-188429

PATIENT
  Age: 75 Year
  Sex: Male

DRUGS (1)
  1. ADEMPAS [Suspect]
     Active Substance: RIOCIGUAT
     Dosage: UNK
     Dates: end: 20170928

REACTIONS (3)
  - Gastrointestinal haemorrhage [None]
  - Tachycardia [None]
  - Pallor [None]

NARRATIVE: CASE EVENT DATE: 20170928
